FAERS Safety Report 23688182 (Version 1)
Quarter: 2024Q1

REPORT INFORMATION
  Report Type: Spontaneous
  Country: US (occurrence: US)
  Receive Date: 20240329
  Receipt Date: 20240329
  Transmission Date: 20240410
  Serious: No
  Sender: FDA-Public Use
  Company Number: US-CTI BIOPHARMA-2023US04296

PATIENT
  Age: 45 Year
  Sex: Female

DRUGS (5)
  1. VONJO [Suspect]
     Active Substance: PACRITINIB
     Indication: Myelofibrosis
     Dosage: BID
     Route: 048
     Dates: start: 20231010
  2. ZYRTEC [Concomitant]
     Active Substance: CETIRIZINE HYDROCHLORIDE
  3. TYLENOL [Concomitant]
     Active Substance: ACETAMINOPHEN
  4. AZITHROMYCIN [Concomitant]
     Active Substance: AZITHROMYCIN
  5. VITAMINS [Concomitant]
     Active Substance: VITAMINS

REACTIONS (10)
  - Diarrhoea [Recovering/Resolving]
  - Abdominal discomfort [Unknown]
  - Product dose omission issue [Unknown]
  - Memory impairment [Unknown]
  - Illness [Unknown]
  - White blood cell count decreased [Unknown]
  - Neutrophil count decreased [Unknown]
  - Nasopharyngitis [Unknown]
  - Secretion discharge [Unknown]
  - Cough [Unknown]
